FAERS Safety Report 4557306-5 (Version None)
Quarter: 2005Q1

REPORT INFORMATION
  Report Type: 
  Country: None (occurrence: None)
  Receive Date: 20050118
  Receipt Date: 20050103
  Transmission Date: 20050727
  Serious: Yes (Hospitalization)
  Sender: FDA-Public Use
  Company Number: 2005000997

PATIENT
  Age: 60 Year
  Sex: Female

DRUGS (2)
  1. TAHOR (ATORVASTATIN) [Suspect]
     Indication: HYPERCHOLESTEROLAEMIA
     Dosage: 10 MG (10 MG, 1 D), ORAL
     Route: 048
     Dates: start: 20041204, end: 20041220
  2. CAPTOPRIL [Concomitant]

REACTIONS (1)
  - SKIN DISORDER [None]
